FAERS Safety Report 12423719 (Version 1)
Quarter: 2016Q2

REPORT INFORMATION
  Report Type: Spontaneous
  Country: US (occurrence: US)
  Receive Date: 20160601
  Receipt Date: 20160601
  Transmission Date: 20160815
  Serious: No
  Sender: FDA-Public Use
  Company Number: US-NOVEN PHARMACEUTICALS, INC.-US2015000657

PATIENT
  Age: 30 Year
  Sex: Female

DRUGS (4)
  1. DAYTRANA [Suspect]
     Active Substance: METHYLPHENIDATE
     Indication: FATIGUE
  2. MODAFINIL. [Concomitant]
     Active Substance: MODAFINIL
     Indication: SOMNOLENCE
  3. DAYTRANA [Suspect]
     Active Substance: METHYLPHENIDATE
     Indication: DEPRESSED LEVEL OF CONSCIOUSNESS
     Dosage: TWO 10 MG PATCHES
     Route: 062
     Dates: start: 201506
  4. DAYTRANA [Suspect]
     Active Substance: METHYLPHENIDATE
     Indication: ATTENTION DEFICIT/HYPERACTIVITY DISORDER
     Dosage: 10 MG, UNKNOWN
     Route: 062
     Dates: start: 201506

REACTIONS (7)
  - Application site urticaria [Not Recovered/Not Resolved]
  - Application site swelling [Not Recovered/Not Resolved]
  - Off label use [Not Recovered/Not Resolved]
  - Application site erythema [Not Recovered/Not Resolved]
  - Insomnia [Unknown]
  - Wrong technique in product usage process [Not Recovered/Not Resolved]
  - Application site pruritus [Not Recovered/Not Resolved]

NARRATIVE: CASE EVENT DATE: 201506
